FAERS Safety Report 8520958 (Version 2)
Quarter: 2012Q4

REPORT INFORMATION
  Report Type: Spontaneous
  Country: JP (occurrence: None)
  Receive Date: 20120412
  Receipt Date: 20121010
  Transmission Date: 20130627
  Serious: Yes (Death)
  Sender: FDA-Public Use
  Company Number: JP-2012-14709

PATIENT
  Age: 78 Year
  Sex: Male
  Weight: 54 kg

DRUGS (9)
  1. SAMSCA [Suspect]
     Indication: FLUID RETENTION
     Dosage: 15 MG MILLIGRAM(S), QPM, ORAL
     Route: 048
     Dates: start: 20120301, end: 20120307
  2. ASPIRIN [Suspect]
     Indication: CEREBRAL INFARCTION
     Dosage: 100 MG MILLIGRAM(S), DAILY DOSE, ORAL
     Route: 048
     Dates: end: 20120228
  3. HEPARIN SODIUM [Suspect]
     Indication: CEREBROVASCULAR ACCIDENT PROPHYLAXIS
     Dosage: 10 Kiu iu(1000s), daily dose, Intravenous
     Dates: start: 20120220, end: 20120228
  4. LANIRAPID (METILDIGOXIN) [Concomitant]
  5. BLOPRESS (CANDESARTAN CILEXETIL) [Concomitant]
  6. LASIX [Concomitant]
  7. AMLODIPINE [Concomitant]
  8. WARFARIN K (WARFARIN POTASSIUM) [Concomitant]
  9. NOVOLOG [Concomitant]

REACTIONS (4)
  - Duodenal ulcer haemorrhage [None]
  - Shock haemorrhagic [None]
  - Fluid retention [None]
  - Haemoglobin decreased [None]
